FAERS Safety Report 20393752 (Version 4)
Quarter: 2022Q3

REPORT INFORMATION
  Report Type: Report from Study
  Country: US (occurrence: US)
  Receive Date: 20220128
  Receipt Date: 20220818
  Transmission Date: 20221027
  Serious: Yes (Other)
  Sender: FDA-Public Use
  Company Number: US-ABBVIE-21K-163-4215212-00

PATIENT
  Age: 55 Year
  Sex: Female

DRUGS (2)
  1. IMBRUVICA [Suspect]
     Active Substance: IBRUTINIB
     Indication: Chronic lymphocytic leukaemia
     Route: 048
     Dates: start: 201810
  2. CLOBETASOL [Suspect]
     Active Substance: CLOBETASOL
     Indication: Product used for unknown indication
     Route: 065

REACTIONS (22)
  - Pulmonary mass [Unknown]
  - Pulmonary fibrosis [Unknown]
  - Haematoma [Unknown]
  - Neoplasm malignant [Unknown]
  - Rectal haemorrhage [Unknown]
  - Epstein-Barr virus test positive [Unknown]
  - Haematochezia [Unknown]
  - Haemorrhoids [Unknown]
  - Hyperplasia [Unknown]
  - Precancerous condition [Unknown]
  - Nightmare [Not Recovered/Not Resolved]
  - Lymphadenopathy [Unknown]
  - Bipolar disorder [Unknown]
  - Nail disorder [Unknown]
  - Ingrowing nail [Unknown]
  - Tongue disorder [Unknown]
  - Paronychia [Unknown]
  - Night sweats [Unknown]
  - Fatigue [Unknown]
  - Malaise [Unknown]
  - Productive cough [Unknown]
  - Infection [Unknown]

NARRATIVE: CASE EVENT DATE: 20191014
